FAERS Safety Report 4634865-5 (Version None)
Quarter: 2005Q2

REPORT INFORMATION
  Report Type: 
  Country: None (occurrence: None)
  Receive Date: 20050414
  Receipt Date: 20050406
  Transmission Date: 20051028
  Serious: Yes (Hospitalization)
  Sender: FDA-Public Use
  Company Number: FR-SOLVAY-00205001182

PATIENT
  Age: 94 Year
  Sex: Female

DRUGS (4)
  1. HEMIGOXINE NATIVELLE [Concomitant]
     Indication: ILL-DEFINED DISORDER
     Dosage: DAILY DOSE:  UNKNOWN
     Route: 048
     Dates: start: 20040520
  2. COVERSYL [Suspect]
     Indication: ILL-DEFINED DISORDER
     Dosage: DAILY DOSE: 4 MILLIGRAM(S)
     Route: 048
     Dates: start: 20040520, end: 20050102
  3. LASILIX [Concomitant]
     Indication: ILL-DEFINED DISORDER
     Dosage: DAILY DOSE:  UNKNOWN
     Route: 048
     Dates: start: 20040520
  4. PREVISCAN [Concomitant]
     Indication: ILL-DEFINED DISORDER
     Dosage: DAILY DOSE:  UNKNOWN
     Route: 048
     Dates: start: 20040520, end: 20050102

REACTIONS (8)
  - FALL [None]
  - HAEMATOMA [None]
  - HYPERKALAEMIA [None]
  - INTERNATIONAL NORMALISED RATIO INCREASED [None]
  - MALAISE [None]
  - RENAL FAILURE [None]
  - RHABDOMYOLYSIS [None]
  - SCAPULA FRACTURE [None]
